FAERS Safety Report 20756326 (Version 2)
Quarter: 2022Q2

REPORT INFORMATION
  Report Type: Spontaneous
  Country: AR (occurrence: AR)
  Receive Date: 20220427
  Receipt Date: 20220504
  Transmission Date: 20220721
  Serious: Yes (Other)
  Sender: FDA-Public Use
  Company Number: AR-Accord-261672

PATIENT
  Age: 47 Year
  Sex: Female

DRUGS (1)
  1. GEMCITABINE [Suspect]
     Active Substance: GEMCITABINE
     Indication: Endometrial cancer

REACTIONS (4)
  - Retinopathy [Recovered/Resolved]
  - Elschnig^s bodies [Recovered/Resolved]
  - Retinal detachment [Recovered/Resolved]
  - Thrombocytopenia [Unknown]
